FAERS Safety Report 17969907 (Version 1)
Quarter: 2020Q3

REPORT INFORMATION
  Report Type: Spontaneous
  Country: AU (occurrence: AU)
  Receive Date: 20200701
  Receipt Date: 20200701
  Transmission Date: 20201103
  Serious: Yes (Hospitalization, Other)
  Sender: FDA-Public Use
  Company Number: AU-009507513-2006AUS009084

PATIENT
  Age: 51 Year
  Sex: Male

DRUGS (5)
  1. SEROQUEL [Suspect]
     Active Substance: QUETIAPINE FUMARATE
     Indication: PSYCHOTIC DISORDER
     Dosage: 3 HALF TABLETS, QD
     Route: 065
  2. INSULIN [Concomitant]
     Active Substance: INSULIN NOS
  3. AZILECT [Concomitant]
     Active Substance: RASAGILINE MESYLATE
  4. SINEMET [Suspect]
     Active Substance: CARBIDOPA\LEVODOPA
     Indication: PARKINSON^S DISEASE
  5. KINSON [Suspect]
     Active Substance: CARBIDOPA\LEVODOPA
     Indication: DEMENTIA

REACTIONS (6)
  - Blood glucose decreased [Unknown]
  - Abnormal dreams [Unknown]
  - Nightmare [Unknown]
  - Psychotic disorder [Unknown]
  - Hypotension [Unknown]
  - Blood glucose increased [Unknown]
